FAERS Safety Report 21901953 (Version 1)
Quarter: 2023Q1

REPORT INFORMATION
  Report Type: Spontaneous
  Country: DE (occurrence: DE)
  Receive Date: 20230124
  Receipt Date: 20230124
  Transmission Date: 20230417
  Serious: Yes (Other)
  Sender: FDA-Public Use
  Company Number: DE-BAYER-2022A093074

PATIENT
  Age: 62 Year
  Sex: Male

DRUGS (4)
  1. EYLEA [Suspect]
     Active Substance: AFLIBERCEPT
     Indication: Venous occlusion
     Dosage: 19 DOSES PRIOR TO THE EVENT, LEFT EYE, SOLUTION FOR INJECTION, 40MG/ML
     Route: 047
     Dates: start: 20220623, end: 20220623
  2. TRUSOPT [Concomitant]
     Active Substance: DORZOLAMIDE HYDROCHLORIDE
     Indication: Glaucoma
  3. METFORMIN [Concomitant]
     Active Substance: METFORMIN HYDROCHLORIDE
     Indication: Diabetes mellitus
  4. ATORVASTATIN [Concomitant]
     Active Substance: ATORVASTATIN
     Indication: Hypercholesterolaemia

REACTIONS (3)
  - Vitreous disorder [Recovered/Resolved]
  - Iritis [Recovered/Resolved]
  - Anterior chamber cell [Recovered/Resolved]

NARRATIVE: CASE EVENT DATE: 20220624
